FAERS Safety Report 10712949 (Version 3)
Quarter: 2015Q1

REPORT INFORMATION
  Report Type: Report from Study
  Country: AU (occurrence: AU)
  Receive Date: 20150115
  Receipt Date: 20150228
  Transmission Date: 20150721
  Serious: Yes (Other)
  Sender: FDA-Public Use
  Company Number: PHHY2015AU002622

PATIENT
  Sex: Female

DRUGS (1)
  1. SANDOSTATIN LAR DEPOT [Suspect]
     Active Substance: OCTREOTIDE ACETATE
     Indication: CARCINOID SYNDROME
     Dosage: 30 MG, UNK
     Route: 030
     Dates: start: 20111118

REACTIONS (5)
  - Back pain [Not Recovered/Not Resolved]
  - Uterine mass [Not Recovered/Not Resolved]
  - Disease progression [Unknown]
  - Abdominal pain lower [Not Recovered/Not Resolved]
  - Poor quality sleep [Not Recovered/Not Resolved]
